FAERS Safety Report 8415453-1 (Version None)
Quarter: 2012Q2

REPORT INFORMATION
  Report Type: 
  Country: None (occurrence: None)
  Receive Date: 20120606
  Receipt Date: 20120601
  Transmission Date: 20120825
  Serious: Yes (Life-Threatening, Other)
  Sender: FDA-Public Use
  Company Number: PHHY2012NO047152

PATIENT
  Sex: Male

DRUGS (1)
  1. LAMISIL [Suspect]
     Indication: ONYCHOMYCOSIS
     Dosage: 250 MG, UNK
     Dates: start: 20111001, end: 20120101

REACTIONS (4)
  - FIBROSIS [None]
  - DYSPNOEA [None]
  - MARROW HYPERPLASIA [None]
  - ACUTE MYELOID LEUKAEMIA [None]
